FAERS Safety Report 25157892 (Version 3)
Quarter: 2025Q3

REPORT INFORMATION
  Report Type: Report from Study
  Country: US (occurrence: US)
  Receive Date: 20250404
  Receipt Date: 20250821
  Transmission Date: 20251021
  Serious: Yes (Hospitalization, Other)
  Sender: JAZZ
  Company Number: US-JAZZ PHARMACEUTICALS-2025-US-005762

PATIENT
  Age: 1 Year
  Sex: Female
  Weight: 15.42 kg

DRUGS (4)
  1. EPIDIOLEX [Suspect]
     Active Substance: CANNABIDIOL
     Indication: Severe myoclonic epilepsy of infancy
     Dosage: 1.5 MILLILITER, BID, G-TUBE (21.33 MILLIGRAM PER KILOGRAM PER DAY) (G-TUBE)
     Dates: start: 20241212
  2. EPIDIOLEX [Suspect]
     Active Substance: CANNABIDIOL
  3. ONFI [Concomitant]
     Active Substance: CLOBAZAM
  4. TOPAMAX [Concomitant]
     Active Substance: TOPIRAMATE

REACTIONS (6)
  - Corpus callosotomy [Not Recovered/Not Resolved]
  - Condition aggravated [Recovering/Resolving]
  - Eye allergy [Unknown]
  - Vomiting [Not Recovered/Not Resolved]
  - Prescribed overdose [Unknown]
  - Intentional product use issue [Unknown]

NARRATIVE: CASE EVENT DATE: 20250101
